FAERS Safety Report 6840083-2 (Version None)
Quarter: 2010Q3

REPORT INFORMATION
  Report Type: 
  Country: None (occurrence: None)
  Receive Date: 20100709
  Receipt Date: 20100203
  Transmission Date: 20110219
  Serious: No
  Sender: FDA-Public Use
  Company Number: NXG-10-001

PATIENT
  Age: 51 Year

DRUGS (1)
  1. ASCOMP WITH CODEINE (50MG, 325MG, 40MG, 30MG) [Suspect]
     Indication: TENSION HEADACHE

REACTIONS (6)
  - AGITATION [None]
  - DISCOMFORT [None]
  - FEELING JITTERY [None]
  - HEART RATE INCREASED [None]
  - PRODUCT SUBSTITUTION ISSUE [None]
  - UNEVALUABLE EVENT [None]
